FAERS Safety Report 6349472-6 (Version None)
Quarter: 2009Q3

REPORT INFORMATION
  Report Type: 
  Country: None (occurrence: None)
  Receive Date: 20090911
  Receipt Date: 20090908
  Transmission Date: 20100115
  Serious: Yes (Hospitalization)
  Sender: FDA-Public Use
  Company Number: US-BAYER-200913960BCC

PATIENT
  Age: 83 Year
  Sex: Female
  Weight: 73 kg

DRUGS (4)
  1. ASPIRIN [Suspect]
     Indication: DRUG USE FOR UNKNOWN INDICATION
     Route: 065
     Dates: start: 20050101
  2. PLAVIX [Concomitant]
  3. HIGH BLOOD PRESSURE MEDICATION [Concomitant]
  4. CHOLESTEROL MEDICATION [Concomitant]

REACTIONS (1)
  - GASTRIC HAEMORRHAGE [None]
